FAERS Safety Report 24064591 (Version 1)
Quarter: 2024Q3

REPORT INFORMATION
  Report Type: Spontaneous
  Country: GB (occurrence: GB)
  Receive Date: 20240709
  Receipt Date: 20240709
  Transmission Date: 20241016
  Serious: Yes (Other)
  Sender: PFIZER
  Company Number: GB-JNJFOC-20110409025

PATIENT
  Age: 33 Year
  Sex: Female

DRUGS (12)
  1. CYTARABINE [Suspect]
     Active Substance: CYTARABINE
     Indication: Burkitt^s lymphoma
     Dosage: NOT REPORTED
  2. DOXORUBICIN HYDROCHLORIDE [Suspect]
     Active Substance: DOXORUBICIN HYDROCHLORIDE
     Indication: Burkitt^s lymphoma
     Dosage: NOT REPORTED
  3. ETOPOSIDE [Suspect]
     Active Substance: ETOPOSIDE
     Indication: Burkitt^s lymphoma
     Dosage: NOT REPORTED
  4. METHOTREXATE SODIUM [Suspect]
     Active Substance: METHOTREXATE SODIUM
     Indication: Burkitt^s lymphoma
     Dosage: NOT REPORTED
  5. VINCRISTINE SULFATE [Suspect]
     Active Substance: VINCRISTINE SULFATE
     Indication: Burkitt^s lymphoma
     Dosage: NOT REPORTED
  6. CYCLOPHOSPHAMIDE [Suspect]
     Active Substance: CYCLOPHOSPHAMIDE
     Indication: Burkitt^s lymphoma
     Dosage: NOT REPORTED
  7. IFOSFAMIDE [Suspect]
     Active Substance: IFOSFAMIDE
     Indication: Burkitt^s lymphoma
     Dosage: NOT REPORTED
  8. EMTRICITABINE [Concomitant]
     Active Substance: EMTRICITABINE
     Indication: Antiretroviral therapy
     Dosage: NOT REPORTED
  9. LAMOTRIGINE [Concomitant]
     Active Substance: LAMOTRIGINE
     Indication: Bipolar disorder
     Dosage: NOT REPORTED
  10. OLANZAPINE [Concomitant]
     Active Substance: OLANZAPINE
     Indication: Bipolar disorder
     Dosage: NOT REPORTED
  11. RALTEGRAVIR [Concomitant]
     Active Substance: RALTEGRAVIR
     Indication: Antiretroviral therapy
     Dosage: NOT REPORTED
  12. TENOFOVIR [Concomitant]
     Active Substance: TENOFOVIR
     Indication: Antiretroviral therapy
     Dosage: NOT REPORTED

REACTIONS (3)
  - Oesophageal candidiasis [Recovered/Resolved]
  - Mucosal inflammation [Recovered/Resolved]
  - Pneumocystis jirovecii pneumonia [Recovered/Resolved]
